FAERS Safety Report 14957397 (Version 1)
Quarter: 2018Q2

REPORT INFORMATION
  Report Type: Spontaneous
  Country: US (occurrence: US)
  Receive Date: 20180531
  Receipt Date: 20180531
  Transmission Date: 20180711
  Serious: Yes (Life-Threatening, Other)
  Sender: FDA-Public Use
  Company Number: US-PFIZER INC-2017358328

PATIENT
  Sex: Female

DRUGS (2)
  1. AMIODARONE HCL [Suspect]
     Active Substance: AMIODARONE HYDROCHLORIDE
     Indication: ATRIAL FIBRILLATION
     Dosage: 200 MG, UNK
     Route: 048
     Dates: start: 200804
  2. AMIODARONE [Suspect]
     Active Substance: AMIODARONE
     Indication: ATRIAL FIBRILLATION
     Dosage: 200 MG, UNK
     Dates: start: 200804

REACTIONS (11)
  - Thyroid disorder [Unknown]
  - Syncope [Unknown]
  - Pulmonary fibrosis [Unknown]
  - Visual impairment [Unknown]
  - Fatigue [Unknown]
  - Nervousness [Unknown]
  - Gait disturbance [Unknown]
  - Anaemia [Unknown]
  - Asthenia [Unknown]
  - Hepatic function abnormal [Unknown]
  - Cataract [Unknown]

NARRATIVE: CASE EVENT DATE: 201601
